FAERS Safety Report 9705390 (Version 2)
Quarter: 2013Q4

REPORT INFORMATION
  Report Type: Spontaneous
  Country: US (occurrence: US)
  Receive Date: 20131122
  Receipt Date: 20131227
  Transmission Date: 20140711
  Serious: Yes (Other)
  Sender: FDA-Public Use
  Company Number: US-B.I. PHARMACEUTICALS,INC./RIDGEFIELD-2013-BI-37210BP

PATIENT
  Age: 42 Year
  Sex: Female
  Weight: 144 kg

DRUGS (5)
  1. SPIRIVA [Suspect]
     Indication: ASTHMA
     Dosage: 18 MCG
     Route: 055
     Dates: start: 20130528, end: 20131111
  2. THYROID [Concomitant]
     Indication: HYPOTHYROIDISM
  3. METFORMIN [Concomitant]
     Indication: DIABETES MELLITUS
  4. DULERA [Concomitant]
     Indication: ASTHMA
  5. QVAR [Concomitant]
     Indication: ASTHMA

REACTIONS (3)
  - Diabetes mellitus [Not Recovered/Not Resolved]
  - Eye haemorrhage [Not Recovered/Not Resolved]
  - Off label use [Not Recovered/Not Resolved]
